FAERS Safety Report 4692519-3 (Version None)
Quarter: 2005Q2

REPORT INFORMATION
  Report Type: 
  Country: None (occurrence: None)
  Receive Date: 20050613
  Receipt Date: 20050405
  Transmission Date: 20051028
  Serious: No
  Sender: FDA-Public Use
  Company Number: 2005-00725

PATIENT
  Age: 89 Year
  Sex: Male
  Weight: 83 kg

DRUGS (4)
  1. VELCADE [Suspect]
     Indication: MULTIPLE MYELOMA
     Dosage: 2/WEEK, INTRAVENOUS
     Route: 042
     Dates: start: 20050131
  2. OLMESARTAN MEDOXOMIL (BENICAR) [Concomitant]
  3. NORVASC [Concomitant]
  4. ZOMETA [Concomitant]

REACTIONS (5)
  - ASTHENIA [None]
  - CONSTIPATION [None]
  - DIARRHOEA [None]
  - HERPES ZOSTER [None]
  - PAIN IN EXTREMITY [None]
